FAERS Safety Report 16301639 (Version 1)
Quarter: 2019Q2

REPORT INFORMATION
  Report Type: Report from Study
  Country: None (occurrence: CO)
  Receive Date: 20190511
  Receipt Date: 20190511
  Transmission Date: 20190711
  Serious: Yes (Other)
  Sender: FDA-Public Use
  Company Number: CO-ABBVIE-19K-036-2779232-00

PATIENT
  Age: 67 Year
  Sex: Female
  Weight: 75 kg

DRUGS (1)
  1. HUMIRA [Suspect]
     Active Substance: ADALIMUMAB
     Indication: ANKYLOSING SPONDYLITIS
     Route: 058
     Dates: start: 20091117, end: 20181228

REACTIONS (8)
  - Influenza like illness [Recovering/Resolving]
  - Surgical failure [Unknown]
  - Post procedural complication [Unknown]
  - Tooth disorder [Recovering/Resolving]
  - Odynophagia [Recovering/Resolving]
  - Post procedural inflammation [Unknown]
  - Tooth injury [Unknown]
  - Nasal congestion [Recovering/Resolving]

NARRATIVE: CASE EVENT DATE: 2017
